FAERS Safety Report 5365020-1 (Version None)
Quarter: 2007Q2

REPORT INFORMATION
  Report Type: 
  Country: None (occurrence: None)
  Receive Date: 20070604
  Receipt Date: 20070319
  Transmission Date: 20071010
  Serious: Yes (Other)
  Sender: FDA-Public Use
  Company Number: 2007-0011697

PATIENT
  Sex: Male

DRUGS (2)
  1. TRUVADA [Suspect]
  2. SUSTIVA [Concomitant]

REACTIONS (1)
  - RENAL FAILURE ACUTE [None]
